FAERS Safety Report 6640695-5 (Version None)
Quarter: 2010Q1

REPORT INFORMATION
  Report Type: 
  Country: None (occurrence: None)
  Receive Date: 20100318
  Receipt Date: 20100305
  Transmission Date: 20100710
  Serious: Yes (Hospitalization, Other)
  Sender: FDA-Public Use
  Company Number: US-ELI_LILLY_AND_COMPANY-US200910004060

PATIENT
  Sex: Male
  Weight: 133.79 kg

DRUGS (15)
  1. BYETTA [Suspect]
     Dosage: 10 UG, 2/D
     Dates: start: 20070801, end: 20071220
  2. TRICOR [Concomitant]
     Indication: HYPERLIPIDAEMIA
     Dosage: 145 MG, DAILY (1/D)
  3. EFFEXOR XR [Concomitant]
     Dosage: 225 MG, DAILY (1/D)
     Dates: start: 19970101, end: 20071201
  4. EFFEXOR XR [Concomitant]
     Dosage: 150 MG, DAILY (1/D)
     Dates: start: 20071201
  5. PREVACID [Concomitant]
     Indication: GASTROOESOPHAGEAL REFLUX DISEASE
     Dosage: 30 MG, DAILY (1/D)
  6. METFORMIN HYDROCHLORIDE [Concomitant]
     Dosage: 1000 MG, 2/D
  7. LANTUS [Concomitant]
     Dosage: 30 MG, EACH EVENING
     Dates: end: 20071018
  8. LANTUS [Concomitant]
     Dosage: 40 MG, EACH EVENING
     Dates: start: 20071019
  9. REGLAN [Concomitant]
     Dosage: 10 MG, DAILY (1/D)
  10. IBUPROFEN [Concomitant]
     Dosage: 1 D/F, AS NEEDED
  11. MULTIVITAMINS PLUS IRON [Concomitant]
  12. VIAGRA [Concomitant]
     Dosage: 50 MG, AS NEEDED
  13. PHENERGAN HCL [Concomitant]
     Indication: NAUSEA
     Dosage: UNK, UNK
     Route: 042
     Dates: start: 20071221
  14. INSULIN [Concomitant]
  15. WELLBATRIN [Concomitant]
     Dosage: 150 MG, EACH MORNING
     Dates: start: 20071201

REACTIONS (4)
  - LUNG NEOPLASM [None]
  - OFF LABEL USE [None]
  - PANCREATITIS ACUTE [None]
  - SLEEP APNOEA SYNDROME [None]
